FAERS Safety Report 5521227-1 (Version None)
Quarter: 2007Q4

REPORT INFORMATION
  Report Type: 
  Country: None (occurrence: None)
  Receive Date: 20071119
  Receipt Date: 20071106
  Transmission Date: 20080405
  Serious: Yes (Other)
  Sender: FDA-Public Use
  Company Number: JP-ASTRAZENECA-2007AP07235

PATIENT
  Age: 40 Year
  Sex: Male

DRUGS (4)
  1. SEROQUEL [Suspect]
     Indication: SCHIZOPHRENIA
     Route: 048
  2. FLUVOXAMINE MALEATE [Concomitant]
     Route: 048
  3. LEVOTOMIN [Concomitant]
     Route: 048
  4. NITRAZEPAM [Concomitant]

REACTIONS (1)
  - HEPATIC FUNCTION ABNORMAL [None]
